FAERS Safety Report 24832044 (Version 1)
Quarter: 2025Q1

REPORT INFORMATION
  Report Type: Spontaneous
  Country: AU (occurrence: AU)
  Receive Date: 20250110
  Receipt Date: 20250110
  Transmission Date: 20250408
  Serious: Yes (Other)
  Sender: AMGEN
  Company Number: AU-AMGEN-AUSSP2025003214

PATIENT
  Sex: Female

DRUGS (1)
  1. ADALIMUMAB [Suspect]
     Active Substance: ADALIMUMAB
     Indication: Crohn^s disease
     Route: 065
     Dates: start: 20241130, end: 20250101

REACTIONS (2)
  - Crohn^s disease [Recovering/Resolving]
  - Drug specific antibody [Recovering/Resolving]

NARRATIVE: CASE EVENT DATE: 20241217
